FAERS Safety Report 22038405 (Version 1)
Quarter: 2023Q1

REPORT INFORMATION
  Report Type: Spontaneous
  Country: PH (occurrence: PH)
  Receive Date: 20230227
  Receipt Date: 20230227
  Transmission Date: 20230418
  Serious: Yes (Other)
  Sender: FDA-Public Use
  Company Number: PH-STERISCIENCE B.V.-2023-ST-000910

PATIENT
  Age: 63 Year
  Sex: Female

DRUGS (2)
  1. MYCOPHENOLATE MOFETIL [Suspect]
     Active Substance: MYCOPHENOLATE MOFETIL
     Indication: Immunoglobulin G4 related disease
     Dosage: UNK
     Route: 065
  2. METHOTREXATE [Suspect]
     Active Substance: METHOTREXATE
     Indication: Immunoglobulin G4 related disease
     Dosage: UNK
     Route: 065

REACTIONS (4)
  - Nephropathy toxic [None]
  - Hepatotoxicity [None]
  - Drug intolerance [Unknown]
  - Off label use [Unknown]
